FAERS Safety Report 9259238 (Version 2)
Quarter: 2013Q3

REPORT INFORMATION
  Report Type: Spontaneous
  Country: US (occurrence: US)
  Receive Date: 20130426
  Receipt Date: 20130717
  Transmission Date: 20140515
  Serious: Yes (Death, Hospitalization, Other)
  Sender: FDA-Public Use
  Company Number: US-B.I. PHARMACEUTICALS,INC./RIDGEFIELD-2013-BI-11729BP

PATIENT
  Age: 72 Year
  Sex: Male
  Weight: 95 kg

DRUGS (17)
  1. PRADAXA [Suspect]
     Indication: ANTICOAGULANT THERAPY
     Dates: start: 20110217, end: 20110504
  2. PREVACID [Concomitant]
  3. LASIX [Concomitant]
  4. COREG [Concomitant]
  5. CYMBALTA [Concomitant]
  6. WELLBUTRIN [Concomitant]
  7. LAMICTAL [Concomitant]
  8. PROSCAR [Concomitant]
  9. FOSAMAX [Concomitant]
  10. POTASSIUM [Concomitant]
  11. CALCIUM [Concomitant]
  12. MULTIVITAMIN [Concomitant]
  13. B12 [Concomitant]
  14. IRON [Concomitant]
  15. VITAMIN A+D [Concomitant]
  16. TESTIM [Concomitant]
  17. VITAMIN D [Concomitant]

REACTIONS (3)
  - Haemorrhage intracranial [Fatal]
  - Craniocerebral injury [Unknown]
  - Fall [Unknown]
